FAERS Safety Report 10747287 (Version 1)
Quarter: 2015Q1

REPORT INFORMATION
  Report Type: Spontaneous
  Country: IT (occurrence: IT)
  Receive Date: 20150129
  Receipt Date: 20150129
  Transmission Date: 20150721
  Serious: Yes (Hospitalization)
  Sender: FDA-Public Use
  Company Number: IT-BRISTOL-MYERS SQUIBB COMPANY-BMS-2015-002729

PATIENT

DRUGS (8)
  1. COUMADIN [Suspect]
     Active Substance: WARFARIN SODIUM
     Indication: ATRIAL FIBRILLATION
     Dosage: 1 UNIT, PRN
     Route: 048
     Dates: start: 20140101, end: 20141222
  2. GLUCOBAY [Concomitant]
     Active Substance: ACARBOSE
  3. LANOXIN [Suspect]
     Active Substance: DIGOXIN
     Indication: COR PULMONALE CHRONIC
     Dosage: 1 UNIT, QD
     Route: 048
     Dates: start: 20140101, end: 20141222
  4. KANRENOL [Concomitant]
     Active Substance: CANRENOATE POTASSIUM
  5. ALLOPURINOL. [Concomitant]
     Active Substance: ALLOPURINOL
  6. LASIX [Concomitant]
     Active Substance: FUROSEMIDE
  7. LEXOTAN [Concomitant]
     Active Substance: BROMAZEPAM
  8. TRUSOPT [Concomitant]
     Active Substance: DORZOLAMIDE HYDROCHLORIDE

REACTIONS (2)
  - Injury [Unknown]
  - Overdose [Unknown]

NARRATIVE: CASE EVENT DATE: 20141222
